FAERS Safety Report 25437990 (Version 2)
Quarter: 2025Q3

REPORT INFORMATION
  Report Type: Spontaneous
  Country: US (occurrence: US)
  Receive Date: 20250616
  Receipt Date: 20250816
  Transmission Date: 20251021
  Serious: No
  Sender: ALEXION PHARMACEUTICALS
  Company Number: US-AstraZeneca-CH-00887295A

PATIENT

DRUGS (1)
  1. CRESTOR [Suspect]
     Active Substance: ROSUVASTATIN CALCIUM
     Route: 065

REACTIONS (6)
  - Cardiac disorder [Unknown]
  - Product dose omission in error [Unknown]
  - Low density lipoprotein increased [Unknown]
  - Insomnia [Unknown]
  - Pain [Unknown]
  - Dyspepsia [Unknown]
